FAERS Safety Report 21404009 (Version 2)
Quarter: 2022Q4

REPORT INFORMATION
  Report Type: Spontaneous
  Country: AR (occurrence: AR)
  Receive Date: 20221003
  Receipt Date: 20221004
  Transmission Date: 20230112
  Serious: Yes (Hospitalization, Other)
  Sender: FDA-Public Use
  Company Number: AR-PFIZER INC-PV202200073683

PATIENT
  Age: 77 Year
  Sex: Male

DRUGS (2)
  1. XELJANZ XR [Suspect]
     Active Substance: TOFACITINIB CITRATE
     Indication: Rheumatoid arthritis
     Dosage: 11 MG, 1X/DAY
     Dates: start: 20171201, end: 20220905
  2. ROFECOXIB [Suspect]
     Active Substance: ROFECOXIB
     Dosage: UNK

REACTIONS (11)
  - Hip fracture [Not Recovered/Not Resolved]
  - Cerebrovascular accident [Not Recovered/Not Resolved]
  - Limb discomfort [Not Recovered/Not Resolved]
  - Fall [Not Recovered/Not Resolved]
  - Gait inability [Unknown]
  - Arthropathy [Unknown]
  - Underweight [Not Recovered/Not Resolved]
  - Arthropathy [Not Recovered/Not Resolved]
  - Limb injury [Unknown]
  - Bone pain [Unknown]
  - Urinary tract infection [Unknown]
